FAERS Safety Report 5907948-7 (Version None)
Quarter: 2008Q4

REPORT INFORMATION
  Report Type: 
  Country: None (occurrence: None)
  Receive Date: 20081003
  Receipt Date: 20080923
  Transmission Date: 20090506
  Serious: Yes (Other)
  Sender: FDA-Public Use
  Company Number: US-PFIZER INC-2008072409

PATIENT
  Sex: Female
  Weight: 56.2 kg

DRUGS (8)
  1. LIPITOR [Suspect]
     Indication: BLOOD CHOLESTEROL INCREASED
     Route: 048
  2. FOSAMAX [Suspect]
     Indication: OSTEOPOROSIS
     Dosage: FREQ:WEEKLY
     Route: 048
  3. IBANDRONATE SODIUM [Suspect]
     Indication: OSTEOPOROSIS
     Dosage: FREQ:MONTHLY
     Route: 048
  4. ALL OTHER THERAPEUTIC PRODUCTS [Concomitant]
  5. VITAMINS [Concomitant]
  6. VITAMIN D [Concomitant]
  7. FISH OIL [Concomitant]
  8. MULTI-VITAMINS [Concomitant]

REACTIONS (2)
  - T-CELL LYMPHOMA [None]
  - URTICARIA [None]
